FAERS Safety Report 9003752 (Version 1)
Quarter: 2013Q1

REPORT INFORMATION
  Report Type: Spontaneous
  Country: US (occurrence: US)
  Receive Date: 20130108
  Receipt Date: 20130108
  Transmission Date: 20140127
  Serious: No
  Sender: FDA-Public Use
  Company Number: US-GLAXOSMITHKLINE-A0972027A

PATIENT
  Sex: Male

DRUGS (17)
  1. LOVAZA [Suspect]
     Indication: BLOOD TRIGLYCERIDES INCREASED
     Dosage: 2G TWICE PER DAY
     Route: 048
     Dates: start: 2009
  2. ASA [Concomitant]
  3. FLONASE [Concomitant]
  4. SUDAFED [Concomitant]
  5. TOPOMAX [Concomitant]
  6. DICYCLOMINE [Concomitant]
  7. TEMAZEPAM [Concomitant]
  8. OXCARBAZEPINE [Concomitant]
  9. RANITIDINE [Concomitant]
  10. FLOVENT [Concomitant]
  11. PRO-AIR [Concomitant]
  12. FORADIL [Concomitant]
  13. LEVEMIR [Concomitant]
  14. KLONOPIN [Concomitant]
  15. SEROQUEL [Concomitant]
  16. HYDROMORPHONE [Concomitant]
  17. ATENOLOL [Concomitant]

REACTIONS (1)
  - Therapeutic response unexpected [Unknown]
